FAERS Safety Report 22020519 (Version 1)
Quarter: 2023Q1

REPORT INFORMATION
  Report Type: Report from Study
  Country: US (occurrence: US)
  Receive Date: 20230222
  Receipt Date: 20230222
  Transmission Date: 20230418
  Serious: Yes (Other)
  Sender: FDA-Public Use
  Company Number: US-OTSUKA-2023_004634

PATIENT
  Sex: Male
  Weight: 80.29 kg

DRUGS (1)
  1. CEDAZURIDINE\DECITABINE [Suspect]
     Active Substance: CEDAZURIDINE\DECITABINE
     Indication: Myelodysplastic syndrome
     Dosage: 1 DF (35 MG OF DECITABINE AND 100 MG OF CEDAZURIDINE), QD ON DAYS 1-5 OF EACH 28 DAY CYCLE
     Route: 048
     Dates: start: 20230112

REACTIONS (2)
  - Laboratory test abnormal [Unknown]
  - Fatigue [Unknown]
